FAERS Safety Report 8910296 (Version 2)
Quarter: 2013Q1

REPORT INFORMATION
  Report Type: Spontaneous
  Country: AU (occurrence: AU)
  Receive Date: 20121115
  Receipt Date: 20130117
  Transmission Date: 20140127
  Serious: Yes (Hospitalization)
  Sender: FDA-Public Use
  Company Number: AU-009507513-1211AUS004859

PATIENT
  Age: 49 Year
  Sex: Male

DRUGS (1)
  1. VICTRELIS 200 MG [Suspect]
     Dosage: 200 MG, UNK
     Route: 048

REACTIONS (4)
  - Transfusion [Unknown]
  - Anaemia [Unknown]
  - Thrombocytopenia [Unknown]
  - Neutropenia [Unknown]
